FAERS Safety Report 5311636-8 (Version None)
Quarter: 2007Q2

REPORT INFORMATION
  Report Type: 
  Country: None (occurrence: None)
  Receive Date: 20070426
  Receipt Date: 20070426
  Transmission Date: 20071010
  Serious: Yes (Hospitalization)
  Sender: FDA-Public Use
  Company Number: None

PATIENT
  Sex: Male
  Weight: 68.6 kg

DRUGS (1)
  1. PEG-INTRON [Suspect]
     Dosage: 211.36 MCG

REACTIONS (2)
  - ANAEMIA [None]
  - INTESTINAL OBSTRUCTION [None]
